FAERS Safety Report 20433917 (Version 1)
Quarter: 2022Q1

REPORT INFORMATION
  Report Type: Spontaneous
  Country: US (occurrence: US)
  Receive Date: 20220205
  Receipt Date: 20220205
  Transmission Date: 20220423
  Serious: No
  Sender: FDA-Public Use
  Company Number: US-TEVA-2022-US-1999195

PATIENT
  Age: 56 Year
  Sex: Female
  Weight: 65.77 kg

DRUGS (2)
  1. AJOVY [Suspect]
     Active Substance: FREMANEZUMAB-VFRM
     Indication: Migraine
     Dosage: 225/1.5 MG/ML
     Route: 065
     Dates: start: 2019
  2. AJOVY [Suspect]
     Active Substance: FREMANEZUMAB-VFRM

REACTIONS (11)
  - Oral discomfort [Recovered/Resolved]
  - Dry mouth [Recovered/Resolved]
  - Oral pain [Recovered/Resolved]
  - Trismus [Recovered/Resolved]
  - Oral disorder [Recovered/Resolved]
  - Immune system disorder [Unknown]
  - Oral discomfort [Recovered/Resolved]
  - Dry mouth [Unknown]
  - Oral pain [Unknown]
  - Trismus [Unknown]
  - Oral disorder [Unknown]

NARRATIVE: CASE EVENT DATE: 20210101
